FAERS Safety Report 16406544 (Version 2)
Quarter: 2019Q3

REPORT INFORMATION
  Report Type: Spontaneous
  Country: US (occurrence: US)
  Receive Date: 20190607
  Receipt Date: 20190821
  Transmission Date: 20191004
  Serious: Yes (Disabling, Other)
  Sender: FDA-Public Use
  Company Number: US-TEVA-2019-US-1059225

PATIENT
  Age: 71 Year
  Sex: Male

DRUGS (1)
  1. 5-FLUOROURACIL [Suspect]
     Active Substance: FLUOROURACIL
     Indication: CORNEAL EPITHELIUM DEFECT
     Dosage: FLUOROURACIL IN 0.2ML OF A BALANCED SALT SOLUTION INTO THE ANTERIOR CHAMBER.
     Route: 031

REACTIONS (2)
  - Blindness [Recovering/Resolving]
  - Corneal oedema [Unknown]
